FAERS Safety Report 17851576 (Version 1)
Quarter: 2020Q2

REPORT INFORMATION
  Report Type: Spontaneous
  Country: NO (occurrence: NO)
  Receive Date: 20200602
  Receipt Date: 20200602
  Transmission Date: 20200714
  Serious: Yes (Hospitalization)
  Sender: FDA-Public Use
  Company Number: NO-AKORN PHARMACEUTICALS-2020AKN00709

PATIENT
  Age: 19 Year
  Sex: Male

DRUGS (2)
  1. ISOTRETINOIN. [Suspect]
     Active Substance: ISOTRETINOIN
     Indication: ACNE
     Dosage: UNK
     Route: 065
  2. UNSPECIFIED TETRACYCLINES [Suspect]
     Active Substance: UNSPECIFIED INGREDIENT
     Indication: ACNE
     Dosage: UNK
     Route: 065

REACTIONS (6)
  - Colitis ulcerative [Recovered/Resolved]
  - Small intestinal obstruction [Recovered/Resolved]
  - Ileostomy [Recovered/Resolved]
  - Toxic epidermal necrolysis [Recovered/Resolved]
  - Small intestinal resection [Recovered/Resolved]
  - Weight decreased [Recovered/Resolved]
